FAERS Safety Report 4999068-3 (Version None)
Quarter: 2006Q2

REPORT INFORMATION
  Report Type: 
  Country: None (occurrence: None)
  Receive Date: 20060509
  Receipt Date: 20060426
  Transmission Date: 20061013
  Serious: Yes (Death, Other)
  Sender: FDA-Public Use
  Company Number: US200604004489

PATIENT
  Age: 53 Year
  Sex: Female

DRUGS (1)
  1. XIGRIS [Suspect]
     Indication: PURPURA FULMINANS
     Dates: start: 20060101, end: 20060101

REACTIONS (3)
  - HAEMORRHAGE [None]
  - ORGAN FAILURE [None]
  - RECTAL HAEMORRHAGE [None]
